FAERS Safety Report 6061368-6 (Version None)
Quarter: 2009Q1

REPORT INFORMATION
  Report Type: 
  Country: None (occurrence: None)
  Receive Date: 20090129
  Receipt Date: 20090129
  Transmission Date: 20090719
  Serious: No
  Sender: FDA-Public Use
  Company Number: None

PATIENT
  Age: 51 Year
  Sex: Male
  Weight: 126.1 kg

DRUGS (1)
  1. SITAGILPTIN [Suspect]
     Indication: DIABETES MELLITUS
     Dosage: 1 TAB EVERY DAY PO
     Route: 048
     Dates: start: 20080509, end: 20080528

REACTIONS (3)
  - HEADACHE [None]
  - NAUSEA [None]
  - VOMITING [None]
